FAERS Safety Report 8057499-1 (Version None)
Quarter: 2012Q1

REPORT INFORMATION
  Report Type: 
  Country: None (occurrence: None)
  Receive Date: 20120119
  Receipt Date: 20120118
  Transmission Date: 20120608
  Serious: Yes (Hospitalization)
  Sender: FDA-Public Use
  Company Number: JP-ABBOTT-11P-087-0873564-00

PATIENT
  Age: 57 Year
  Sex: Female
  Weight: 44 kg

DRUGS (6)
  1. AMOXICILLIN [Suspect]
     Indication: HELICOBACTER INFECTION
     Route: 048
     Dates: start: 20110928, end: 20111004
  2. BENZABLOCK L [Suspect]
     Indication: OROPHARYNGEAL PAIN
     Route: 048
     Dates: start: 20111007, end: 20111007
  3. IRBESARTAN [Concomitant]
     Indication: HYPERTENSION
     Route: 048
     Dates: start: 20111006, end: 20111006
  4. CLARITHROMYCIN [Suspect]
     Indication: HELICOBACTER INFECTION
     Route: 048
     Dates: start: 20110928, end: 20111004
  5. LANSOPRAZOLE [Suspect]
     Indication: HELICOBACTER INFECTION
     Route: 048
     Dates: start: 20110928, end: 20111004
  6. ANTIBIOTICS-RESISTANT LACTIC ACID BACTERIAE [Concomitant]
     Indication: DISBACTERIOSIS
     Route: 048
     Dates: start: 20110928, end: 20111004

REACTIONS (7)
  - OROPHARYNGEAL PAIN [None]
  - HEADACHE [None]
  - ORAL MUCOSAL ERYTHEMA [None]
  - PYREXIA [None]
  - ORAL PAIN [None]
  - STEVENS-JOHNSON SYNDROME [None]
  - OCULAR HYPERAEMIA [None]
